FAERS Safety Report 8407662-2 (Version None)
Quarter: 2012Q2

REPORT INFORMATION
  Report Type: 
  Country: None (occurrence: None)
  Receive Date: 20120529
  Receipt Date: 20071001
  Transmission Date: 20120825
  Serious: Yes (Death, Hospitalization)
  Sender: FDA-Public Use
  Company Number: 02100-JPN-07-0502

PATIENT
  Age: 83 Year
  Sex: Female

DRUGS (6)
  1. HYPOCA (BARNIDIPINE) [Concomitant]
  2. PLETAL [Suspect]
     Indication: LACUNAR INFARCTION
     Dosage: 50 MG, BID, ORAL
     Route: 048
     Dates: start: 20040720, end: 20070304
  3. PRAVASTATIN [Concomitant]
  4. AMARYL [Concomitant]
  5. ALSIODOL (ALFACALCIDOL) [Concomitant]
  6. LOSARTAN POTASSIUM [Concomitant]

REACTIONS (4)
  - MARASMUS [None]
  - PYREXIA [None]
  - VOMITING [None]
  - HYPERHIDROSIS [None]
